FAERS Safety Report 17021496 (Version 1)
Quarter: 2019Q4

REPORT INFORMATION
  Report Type: Spontaneous
  Country: US (occurrence: US)
  Receive Date: 20191111
  Receipt Date: 20191111
  Transmission Date: 20200122
  Serious: Yes (Other)
  Sender: FDA-Public Use
  Company Number: None

PATIENT
  Age: 28 Year
  Sex: Female
  Weight: 53.55 kg

DRUGS (3)
  1. MEASLES,MUMPS, AND RUBELLA VACCINE [Concomitant]
     Dates: start: 20190904
  2. MULTIPLE VITAMIN WITH FOLIC ACID [Concomitant]
     Active Substance: FOLIC ACID\VITAMINS
     Dates: start: 20171220, end: 20191018
  3. MEDROXYPROGESTERONE ACETATE. [Suspect]
     Active Substance: MEDROXYPROGESTERONE ACETATE
     Indication: PREGNANCY ON CONTRACEPTIVE
     Dosage: ?          OTHER FREQUENCY:EVERY 12-13 WEEKS;?
     Route: 030
     Dates: start: 20171220, end: 20190904

REACTIONS (2)
  - Pregnancy with injectable contraceptive [None]
  - Exposure during pregnancy [None]

NARRATIVE: CASE EVENT DATE: 20191018
